FAERS Safety Report 13922107 (Version 1)
Quarter: 2017Q3

REPORT INFORMATION
  Report Type: Spontaneous
  Country: US (occurrence: US)
  Receive Date: 20170830
  Receipt Date: 20170830
  Transmission Date: 20171127
  Serious: No
  Sender: FDA-Public Use
  Company Number: US-TARO-2017TAR00561

PATIENT
  Sex: Female
  Weight: 58.96 kg

DRUGS (17)
  1. WARFARIN SODIUM TABLETS USP 5MG [Suspect]
     Active Substance: WARFARIN SODIUM
     Indication: THROMBOSIS
     Dosage: 5 MG, ONCE DAILY, 6X/WEEK EXCEPT MONDAY
     Route: 048
  2. COQ10 [Concomitant]
     Active Substance: UBIDECARENONE
     Dosage: 200 MG, 1X/DAY
  3. BEE PROPOLIS EXTRACT [Concomitant]
     Dosage: UNK, AS NEEDED
  4. ULTIMATE 10 PROBIOTIC [Concomitant]
     Dosage: 1 CAPSULES, AS NEEDED
  5. FOCUS FACTOR [Concomitant]
     Dosage: 2 TABLETS, 2X/DAY
  6. VITAMIN C [Concomitant]
     Active Substance: ASCORBIC ACID
     Dosage: 3000 MG, 1X/DAY
  7. VITAMIN C [Concomitant]
     Active Substance: ASCORBIC ACID
     Dosage: 4000 MG, 1X/DAY
  8. QUERCETIN [Concomitant]
     Active Substance: QUERCETIN
     Dosage: 500 MG, 1X/DAY
  9. FISH OIL [Concomitant]
     Active Substance: FISH OIL
     Dosage: 1000 MG, 1X/DAY
  10. WARFARIN SODIUM TABLETS USP 5MG [Suspect]
     Active Substance: WARFARIN SODIUM
     Indication: PULMONARY THROMBOSIS
     Dosage: 2.5 MG, 1X/WEEK ON MONDAY^S
     Route: 048
  11. POTASSIUM CITRATE. [Concomitant]
     Active Substance: POTASSIUM CITRATE
     Dosage: 99 MG, 1X/DAY
  12. VITAMIN D3 [Concomitant]
     Active Substance: CHOLECALCIFEROL
     Dosage: 2000 IU, 1X/DAY
  13. LUTEIN [Concomitant]
     Active Substance: LUTEIN
     Dosage: 20 MG, 1X/DAY
  14. CALCIUM CITRATE AND MAGNESIUM [Concomitant]
     Dosage: 6 CAPSULES, 1X/DAY
  15. VITAMIN B COMPLEX [Concomitant]
     Active Substance: CYANOCOBALAMIN\DEXPANTHENOL\NIACINAMIDE\PYRIDOXINE HYDROCHLORIDE\RIBOFLAVIN 5^-PHOSPHATE SODIUM\THIAMINE HYDROCHLORIDE\VITAMIN B COMPLEX
     Dosage: UNK, 1X/DAY
  16. JOINT AND TISSUE [Concomitant]
     Dosage: 4 CAPSULES, 1X/DAY 1/2 HOUR BEFORE BREAKFAST
  17. ULTIMATE 10 PROBIOTIC [Concomitant]
     Dosage: 2 CAPSULES, AS NEEDED

REACTIONS (3)
  - Contusion [Not Recovered/Not Resolved]
  - Skin discolouration [Not Recovered/Not Resolved]
  - Drug dose omission [Unknown]

NARRATIVE: CASE EVENT DATE: 2017
